FAERS Safety Report 7012935-4 (Version None)
Quarter: 2010Q3

REPORT INFORMATION
  Report Type: 
  Country: None (occurrence: None)
  Receive Date: 20100924
  Receipt Date: 20100910
  Transmission Date: 20110219
  Serious: Yes (Other)
  Sender: FDA-Public Use
  Company Number: BR-PFIZER INC-2010107607

PATIENT
  Age: 49 Year
  Sex: Female
  Weight: 57 kg

DRUGS (4)
  1. CHAMPIX [Suspect]
     Indication: TOBACCO USER
     Dosage: UNK
     Route: 048
     Dates: start: 20100801, end: 20100101
  2. CHAMPIX [Suspect]
     Dosage: 1 MG, 2X/DAY, EVERY 12 HOURS
     Route: 048
     Dates: start: 20100101, end: 20100908
  3. DUOVENT [Concomitant]
     Indication: BRONCHITIS
     Dosage: UNK
     Dates: start: 19930101
  4. SERETIDE [Concomitant]
     Indication: BRONCHITIS
     Dosage: UNK
     Dates: start: 20100801

REACTIONS (10)
  - ABDOMINAL PAIN UPPER [None]
  - ANXIETY [None]
  - BLISTER [None]
  - CHEST PAIN [None]
  - DIZZINESS [None]
  - FLATULENCE [None]
  - NODULE [None]
  - PAIN [None]
  - PRURITUS GENERALISED [None]
  - WOUND [None]
